FAERS Safety Report 7968281-5 (Version None)
Quarter: 2011Q4

REPORT INFORMATION
  Report Type: 
  Country: None (occurrence: None)
  Receive Date: 20111209
  Receipt Date: 20111206
  Transmission Date: 20120403
  Serious: Yes (Hospitalization, Other)
  Sender: FDA-Public Use
  Company Number: PHHY2011BE79721

PATIENT
  Age: 71 Year
  Sex: Male
  Weight: 55 kg

DRUGS (5)
  1. GLEEVEC [Suspect]
     Dosage: 100 MG, DAILY
     Route: 048
  2. BUMETANIDE [Concomitant]
     Dosage: 5 MG, /DAY
     Dates: start: 20110920, end: 20110930
  3. DICLOFENAC [Concomitant]
     Indication: PAIN
     Dosage: 75 MG, UNK
     Dates: start: 20110920, end: 20110930
  4. PLAVIX [Suspect]
     Dosage: 75 MG, PER DAY
     Dates: start: 20020101, end: 20110906
  5. GLEEVEC [Suspect]
     Indication: GASTROINTESTINAL STROMAL TUMOUR
     Dosage: 400 MG, PER DAY
     Route: 048
     Dates: start: 20110420, end: 20110930

REACTIONS (15)
  - NOCTURIA [None]
  - BLOOD UREA INCREASED [None]
  - RENAL IMPAIRMENT [None]
  - BLADDER DISORDER [None]
  - FALL [None]
  - DIZZINESS [None]
  - BLOOD CREATININE INCREASED [None]
  - PETECHIAE [None]
  - POLLAKIURIA [None]
  - ANASTOMOTIC ULCER [None]
  - RENAL FAILURE ACUTE [None]
  - OEDEMA PERIPHERAL [None]
  - BLOOD URIC ACID INCREASED [None]
  - URINARY INCONTINENCE [None]
  - HAEMOGLOBIN DECREASED [None]
